FAERS Safety Report 26144320 (Version 1)
Quarter: 2025Q4

REPORT INFORMATION
  Report Type: Spontaneous
  Country: US (occurrence: US)
  Receive Date: 20251211
  Receipt Date: 20251211
  Transmission Date: 20260117
  Serious: No
  Sender: AVEO PHARMACEUTICALS
  Company Number: US-AVEO PHARMACEUTICALS, INC.-2025-AVEO-US001017

PATIENT
  Sex: Male

DRUGS (22)
  1. FOTIVDA [Suspect]
     Active Substance: TIVOZANIB HYDROCHLORIDE
     Indication: Renal cell carcinoma
     Dosage: 1.34 MG DAILY FOR 21 DAYS WITH 7 DAYS OFF (28-DAY CYCLE)
  2. ALLOPURINOL [Concomitant]
     Active Substance: ALLOPURINOL
  3. VITAMINS [Concomitant]
     Active Substance: VITAMINS
  4. ZINC [Concomitant]
     Active Substance: ZINC
     Dosage: MULTIVITAMIN ZINC
  5. SINGULAIR [Concomitant]
     Active Substance: MONTELUKAST SODIUM
  6. ASPIRIN [Concomitant]
     Active Substance: ASPIRIN
  7. NORCO [Concomitant]
     Active Substance: ACETAMINOPHEN\HYDROCODONE BITARTRATE
  8. SYNTHROID [Concomitant]
     Active Substance: LEVOTHYROXINE SODIUM
  9. CARVEDILOL [Concomitant]
     Active Substance: CARVEDILOL
  10. NYSTATIN [Concomitant]
     Active Substance: NYSTATIN
  11. TRIAMCINOLONE [Concomitant]
     Active Substance: TRIAMCINOLONE
  12. DOXAZOSIN [Concomitant]
     Active Substance: DOXAZOSIN MESYLATE
  13. ONDANSETRON [Concomitant]
     Active Substance: ONDANSETRON
  14. TYLENOL [Concomitant]
     Active Substance: ACETAMINOPHEN
  15. FENTANYL [Concomitant]
     Active Substance: FENTANYL
  16. PANTOPRAZOLE [Concomitant]
     Active Substance: PANTOPRAZOLE
  17. XARELTO [Concomitant]
     Active Substance: RIVAROXABAN
  18. HYDRALAZINE [Concomitant]
     Active Substance: HYDRALAZINE HYDROCHLORIDE
  19. PLAVIX [Concomitant]
     Active Substance: CLOPIDOGREL BISULFATE
  20. VITAMIN C [Concomitant]
     Active Substance: ASCORBIC ACID
  21. LASIX [Concomitant]
     Active Substance: FUROSEMIDE
  22. SIMVASTATIN [Concomitant]
     Active Substance: SIMVASTATIN

REACTIONS (1)
  - Disease progression [Unknown]
